FAERS Safety Report 4960407-0 (Version None)
Quarter: 2006Q2

REPORT INFORMATION
  Report Type: 
  Country: None (occurrence: None)
  Receive Date: 20060403
  Receipt Date: 20051019
  Transmission Date: 20061013
  Serious: Yes (Hospitalization)
  Sender: FDA-Public Use
  Company Number: PHBS2005JP15526

PATIENT
  Age: 61 Year
  Sex: Male

DRUGS (1)
  1. GLEEVEC [Suspect]
     Indication: CHRONIC MYELOID LEUKAEMIA
     Dosage: UNK, UNK
     Route: 048
     Dates: start: 20041001, end: 20051001

REACTIONS (7)
  - BRAIN OEDEMA [None]
  - DIZZINESS [None]
  - EATING DISORDER [None]
  - HYDROCEPHALUS [None]
  - NAUSEA [None]
  - SURGERY [None]
  - UPPER RESPIRATORY TRACT INFLAMMATION [None]
